FAERS Safety Report 13488620 (Version 1)
Quarter: 2017Q2

REPORT INFORMATION
  Report Type: Spontaneous
  Country: US (occurrence: US)
  Receive Date: 20170427
  Receipt Date: 20170427
  Transmission Date: 20170830
  Serious: No
  Sender: FDA-Public Use
  Company Number: US-CIPLA LTD.-2017US02342

PATIENT

DRUGS (1)
  1. LEVOFLOXACIN. [Suspect]
     Active Substance: LEVOFLOXACIN
     Indication: SINUSITIS
     Dosage: 500 MG, UNK
     Route: 065

REACTIONS (8)
  - Diarrhoea [Unknown]
  - Tremor [Unknown]
  - Joint swelling [Not Recovered/Not Resolved]
  - Feeling cold [Unknown]
  - Local swelling [Recovered/Resolved]
  - Muscle swelling [Recovered/Resolved]
  - Pain in extremity [Unknown]
  - Gait disturbance [Not Recovered/Not Resolved]
